FAERS Safety Report 18555044 (Version 2)
Quarter: 2020Q4

REPORT INFORMATION
  Report Type: Report from Study
  Country: IL (occurrence: IL)
  Receive Date: 20201127
  Receipt Date: 20201202
  Transmission Date: 20210114
  Serious: Yes (Hospitalization)
  Sender: FDA-Public Use
  Company Number: IL-TAKEDA-2020TUS052792

PATIENT

DRUGS (1)
  1. VELAGLUCERASE ALFA [Suspect]
     Active Substance: VELAGLUCERASE ALFA
     Indication: GAUCHER^S DISEASE
     Dosage: 30 MILLIGRAM/KILOGRAM, Q2WEEKS
     Route: 042
     Dates: start: 20140908

REACTIONS (1)
  - Parkinson^s disease [Recovered/Resolved]

NARRATIVE: CASE EVENT DATE: 20201122
